FAERS Safety Report 4372128-6 (Version None)
Quarter: 2004Q2

REPORT INFORMATION
  Report Type: 
  Country: None (occurrence: None)
  Receive Date: 20040603
  Receipt Date: 20040603
  Transmission Date: 20050107
  Serious: Yes (Hospitalization)
  Sender: FDA-Public Use
  Company Number: None

PATIENT
  Sex: Male
  Weight: 59.648 kg

DRUGS (12)
  1. METRONIDAZOLE [Suspect]
     Indication: CLOSTRIDIAL INFECTION
     Dosage: 500MG TID ORAL
     Route: 048
     Dates: start: 20040308, end: 20040310
  2. WARFARIN SODIUM [Concomitant]
  3. MEGESTROL [Concomitant]
  4. SIMVASTATIN [Concomitant]
  5. ASCORBIC ACID [Concomitant]
  6. FERROUS SULFATE TAB [Concomitant]
  7. ISOSORBIDE DINITRATE [Concomitant]
  8. PHENYTOIN [Concomitant]
  9. LOPERAMIDE HCL [Concomitant]
  10. FOLIC ACID [Concomitant]
  11. IPRATROPIUM/ALBUTEROL [Concomitant]
  12. OMEPRAZOLE [Concomitant]

REACTIONS (1)
  - PLATELET COUNT DECREASED [None]
